FAERS Safety Report 4834170-8 (Version None)
Quarter: 2005Q4

REPORT INFORMATION
  Report Type: 
  Country: None (occurrence: None)
  Receive Date: 20051118
  Receipt Date: 20051118
  Transmission Date: 20060501
  Serious: Yes (Other)
  Sender: FDA-Public Use
  Company Number: None

PATIENT
  Age: 55 Year
  Sex: Male
  Weight: 86.2 kg

DRUGS (12)
  1. OXYCODONE HCL AND ACETAMINOPHEN [Suspect]
  2. MELOXICAM [Concomitant]
  3. ATORVASTATIN CALCIUM [Concomitant]
  4. OMEPRAZOLE [Concomitant]
  5. HC 1%/NEOMYCIN 3.5MG/POLYMYXIN [Concomitant]
  6. BETAMETHASONE DIPROPIONATE [Concomitant]
  7. FLUOCINOLONE ACETONIDE [Concomitant]
  8. OLANZAPINE [Concomitant]
  9. OMEGA-3 (N-3) POLYUNSAT FATTY ACID [Concomitant]
  10. PIMECROLIMUS [Concomitant]
  11. NIACIN [Concomitant]
  12. HCTZ 25/TRIAMTERENE 37.5MG [Concomitant]

REACTIONS (1)
  - NIGHTMARE [None]
